FAERS Safety Report 11682842 (Version 1)
Quarter: 2015Q4

REPORT INFORMATION
  Report Type: Spontaneous
  Country: US (occurrence: US)
  Receive Date: 20151029
  Receipt Date: 20151029
  Transmission Date: 20160304
  Serious: No
  Sender: FDA-Public Use
  Company Number: US-TEVA-603417ACC

PATIENT
  Age: 38 Year
  Sex: Female
  Weight: 65.83 kg

DRUGS (1)
  1. PARAGARD T 380A [Suspect]
     Active Substance: COPPER
     Indication: CONTRACEPTION
     Dates: start: 20150803, end: 20151019

REACTIONS (5)
  - Pelvic pain [Unknown]
  - Dyspareunia [Unknown]
  - Device expulsion [Recovered/Resolved]
  - Vaginal haemorrhage [Unknown]
  - Vaginal discharge [Unknown]

NARRATIVE: CASE EVENT DATE: 20151019
